FAERS Safety Report 8054217-8 (Version None)
Quarter: 2012Q1

REPORT INFORMATION
  Report Type: 
  Country: None (occurrence: None)
  Receive Date: 20120118
  Receipt Date: 20120110
  Transmission Date: 20120608
  Serious: Yes (Other)
  Sender: FDA-Public Use
  Company Number: US-ROCHE-782744

PATIENT
  Sex: Female
  Weight: 61.29 kg

DRUGS (7)
  1. ACCUTANE [Suspect]
     Indication: ACNE
     Route: 065
     Dates: start: 19970101, end: 19980101
  2. SOTRET [Suspect]
     Indication: ACNE
     Route: 065
     Dates: start: 20040603, end: 20040703
  3. CLARAVIS [Suspect]
     Indication: ACNE
     Route: 065
     Dates: start: 20070827, end: 20080110
  4. ACCUTANE [Suspect]
     Dates: start: 20070827, end: 20080101
  5. ACCUTANE [Suspect]
     Route: 065
     Dates: start: 20011031, end: 20020103
  6. AMNESTEEM [Suspect]
     Dates: start: 20051017, end: 20061201
  7. AMNESTEEM [Suspect]
     Indication: ACNE
     Route: 065
     Dates: start: 20040506, end: 20040905

REACTIONS (9)
  - COLITIS ULCERATIVE [None]
  - HEADACHE [None]
  - BLOOD LACTATE DEHYDROGENASE INCREASED [None]
  - LIP DRY [None]
  - BLOOD TRIGLYCERIDES INCREASED [None]
  - DEPRESSION [None]
  - ANXIETY [None]
  - STRESS [None]
  - INFLAMMATORY BOWEL DISEASE [None]
